FAERS Safety Report 12771856 (Version 4)
Quarter: 2022Q3

REPORT INFORMATION
  Report Type: Spontaneous
  Country: CA (occurrence: CA)
  Receive Date: 20160922
  Receipt Date: 20220811
  Transmission Date: 20221026
  Serious: Yes (Other)
  Sender: FDA-Public Use
  Company Number: CA-BAYER-2016-179851

PATIENT
  Age: 64 Year
  Sex: Male

DRUGS (2)
  1. AVELOX [Suspect]
     Active Substance: MOXIFLOXACIN HYDROCHLORIDE
     Indication: Respiratory tract infection bacterial
     Dosage: UNK
     Dates: start: 201402
  2. AVELOX [Suspect]
     Active Substance: MOXIFLOXACIN HYDROCHLORIDE
     Indication: Respiratory tract infection bacterial
     Dosage: UNK
     Dates: start: 201408

REACTIONS (6)
  - Neuropathy peripheral [None]
  - Aortic dissection [None]
  - Diarrhoea [None]
  - Fatigue [None]
  - Joint swelling [None]
  - Abdominal distension [None]

NARRATIVE: CASE EVENT DATE: 20140220
